FAERS Safety Report 17651341 (Version 7)
Quarter: 2020Q3

REPORT INFORMATION
  Report Type: Report from Study
  Country: BR (occurrence: BR)
  Receive Date: 20200409
  Receipt Date: 20200804
  Transmission Date: 20201102
  Serious: Yes (Hospitalization)
  Sender: FDA-Public Use
  Company Number: BR-ROCHE-2580655

PATIENT
  Age: 61 Year
  Sex: Female
  Weight: 72 kg

DRUGS (17)
  1. TRASTUZUMAB. [Suspect]
     Active Substance: TRASTUZUMAB
     Indication: HER2 POSITIVE BREAST CANCER
     Dosage: LAST DOSE OF TRASTUZUMAB ADMINISTERED PRIOR TO SAE ONSET ON 06/FEB/2020 AT 15.15: 432 MG
     Route: 042
     Dates: start: 20181227
  2. FLUOXETINE [Concomitant]
     Active Substance: FLUOXETINE HYDROCHLORIDE
     Indication: DEPRESSION
     Route: 048
     Dates: start: 2009
  3. AMITRIPTYLINE [Concomitant]
     Active Substance: AMITRIPTYLINE
     Indication: DEPRESSION
     Route: 048
     Dates: start: 2009
  4. OMEPRAZOLE. [Concomitant]
     Active Substance: OMEPRAZOLE
     Route: 048
     Dates: start: 20200403, end: 20200403
  5. CYCLOPHOSPHAMIDE. [Suspect]
     Active Substance: CYCLOPHOSPHAMIDE
     Indication: HER2 POSITIVE BREAST CANCER
     Dosage: MOST RECENT DOSE PRIOR TO SAE 1122 MG ON 11/DEC/2018 AT 18:30 HRS.
     Route: 042
     Dates: start: 20181030
  6. PACLITAXEL. [Suspect]
     Active Substance: PACLITAXEL
     Indication: HER2 POSITIVE BREAST CANCER
     Dosage: MOST RECENT DOSE PRIOR TO SAE 140.8 MG ON 15/MAR/2019 AT 14:30 HRS.
     Route: 042
     Dates: start: 20181227
  7. HEPARINA SODICA [Concomitant]
     Active Substance: HEPARIN SODIUM
     Route: 058
     Dates: start: 20200406, end: 20200407
  8. HUMAN REGULAR INSULIN [Concomitant]
     Active Substance: INSULIN HUMAN
     Route: 042
     Dates: start: 20200407, end: 20200407
  9. IBUPROFEN. [Concomitant]
     Active Substance: IBUPROFEN
     Indication: ARTHRALGIA
     Route: 048
     Dates: start: 2010
  10. FUROSEMIDE. [Concomitant]
     Active Substance: FUROSEMIDE
     Route: 042
     Dates: start: 20200407, end: 20200407
  11. HEPARINA SODICA [Concomitant]
     Active Substance: HEPARIN SODIUM
     Indication: THROMBOSIS PROPHYLAXIS
     Route: 058
     Dates: start: 20200403, end: 20200404
  12. SPIRONOLACTONE. [Concomitant]
     Active Substance: SPIRONOLACTONE
     Indication: POLYURIA
     Route: 048
     Dates: start: 20200407, end: 20200407
  13. PERTUZUMAB. [Suspect]
     Active Substance: PERTUZUMAB
     Indication: HER2 POSITIVE BREAST CANCER
     Dosage: LAST DOSE OF PERTUZUMAB ADMINISTERED PRIOR TO SAE ONSET ON 06/FEB/2020 AT 14.15: 420 MG
     Route: 042
     Dates: start: 20181227
  14. DOXORUBICIN [Suspect]
     Active Substance: DOXORUBICIN
     Indication: HER2 POSITIVE BREAST CANCER
     Dosage: MOST RECENT DOSE PRIOR TO SAE 112.2 MG ON 11/DEC/2018 AT 18:15 HRS.
     Route: 042
     Dates: start: 20181030
  15. AMITRIPTYLINE [Concomitant]
     Active Substance: AMITRIPTYLINE
     Route: 048
     Dates: start: 20200403, end: 20200405
  16. AMITRIPTYLINE [Concomitant]
     Active Substance: AMITRIPTYLINE
     Route: 048
     Dates: start: 20200407, end: 20200407
  17. FUROSEMIDE. [Concomitant]
     Active Substance: FUROSEMIDE
     Indication: POLYURIA
     Route: 042
     Dates: start: 20200403, end: 20200405

REACTIONS (1)
  - Cardiac failure [Recovered/Resolved]

NARRATIVE: CASE EVENT DATE: 20200403
